FAERS Safety Report 8902645 (Version 1)
Quarter: 2012Q4

REPORT INFORMATION
  Report Type: 
  Country: CA (occurrence: CA)
  Receive Date: 20121112
  Receipt Date: 20121112
  Transmission Date: 20130627
  Serious: Yes (Disabling, Other)
  Sender: FDA-Public Use
  Company Number: CA-ASTRAZENECA-2012SE83660

PATIENT
  Age: 82 Year
  Sex: Female
  Weight: 54.9 kg

DRUGS (11)
  1. LOSEC [Suspect]
     Route: 048
  2. ACTONEL [Concomitant]
  3. AMIODARONE [Concomitant]
  4. ASAPHEN [Concomitant]
  5. ATIVAN [Concomitant]
  6. CALCIUM CARBONATE [Concomitant]
  7. FERROUS SULPHATE [Concomitant]
  8. FUROSEMIDE [Concomitant]
  9. PLAVIX [Concomitant]
  10. PRAVASTATIN SODIUM [Concomitant]
  11. VITAMIN D [Concomitant]

REACTIONS (1)
  - Osteopetrosis [Unknown]
